FAERS Safety Report 5642391-X (Version None)
Quarter: 2008Q1

REPORT INFORMATION
  Report Type: 
  Country: None (occurrence: None)
  Receive Date: 20080227
  Receipt Date: 20080227
  Transmission Date: 20080703
  Serious: Yes (Other)
  Sender: FDA-Public Use
  Company Number: None

PATIENT
  Sex: Female
  Weight: 61.2356 kg

DRUGS (1)
  1. AZITHROMYCIN [Suspect]
     Indication: UPPER RESPIRATORY TRACT INFECTION
     Dosage: 250 MG TAB 2 PO NOW + 1 PO QD X 4 DAYS PO WOULD HAVE COMPLETED 5-1-06
     Route: 048
     Dates: end: 20060501

REACTIONS (6)
  - DIZZINESS [None]
  - NAUSEA [None]
  - PARAESTHESIA [None]
  - PRESYNCOPE [None]
  - TINNITUS [None]
  - VOMITING [None]
